FAERS Safety Report 4886106-1 (Version None)
Quarter: 2006Q1

REPORT INFORMATION
  Report Type: 
  Country: None (occurrence: None)
  Receive Date: 20060118
  Receipt Date: 20060118
  Transmission Date: 20060701
  Serious: Yes (Hospitalization)
  Sender: FDA-Public Use
  Company Number: None

PATIENT
  Sex: Female
  Weight: 64 kg

DRUGS (4)
  1. ADVIL [Suspect]
     Indication: BACK PAIN
     Dosage: PRN
  2. ALEVE [Suspect]
     Indication: BACK PAIN
     Dosage: PRN
  3. NSAIDS [Concomitant]
  4. PRILOSEC [Concomitant]

REACTIONS (2)
  - HYPOTENSION [None]
  - MELAENA [None]
